FAERS Safety Report 17911669 (Version 7)
Quarter: 2020Q4

REPORT INFORMATION
  Report Type: Spontaneous
  Country: US (occurrence: US)
  Receive Date: 20200618
  Receipt Date: 20201013
  Transmission Date: 20210113
  Serious: No
  Sender: FDA-Public Use
  Company Number: US-PFIZER INC-2020236271

PATIENT
  Age: 46 Year
  Sex: Female
  Weight: 101 kg

DRUGS (6)
  1. IBRANCE [Suspect]
     Active Substance: PALBOCICLIB
     Dosage: 125 MG, CYCLIC (125 MG DAILY FOR 21 DAYS OF 28 DAY CYCLE)/(21 DAYS ON/7 DAYS OFF)
     Route: 048
     Dates: start: 20200414
  2. LETROZOLE. [Concomitant]
     Active Substance: LETROZOLE
     Dosage: 2.5 MG
  3. VITAMIN D2 [Concomitant]
     Active Substance: ERGOCALCIFEROL
     Dosage: 1250 UG
  4. IBRANCE [Suspect]
     Active Substance: PALBOCICLIB
     Indication: BREAST CANCER FEMALE
     Dosage: 125 MG, 1X/DAY
     Route: 048
     Dates: start: 20200529, end: 2020
  5. IBRANCE [Suspect]
     Active Substance: PALBOCICLIB
     Dosage: 125 MG, CYCLIC (DAILY FOR 21 DAYS ON, 7 DAYS OFF)
     Route: 048
     Dates: start: 20200529, end: 2020
  6. ZOMETA [Concomitant]
     Active Substance: ZOLEDRONIC ACID
     Dosage: UNK (4 MG/100ML PGGYBK BTL)

REACTIONS (8)
  - Urticaria [Unknown]
  - Rash [Unknown]
  - Breast pain [Unknown]
  - Neoplasm progression [Unknown]
  - Discomfort [Unknown]
  - Fatigue [Recovered/Resolved]
  - Pruritus [Unknown]
  - Spinal pain [Unknown]

NARRATIVE: CASE EVENT DATE: 2020
